FAERS Safety Report 15262777 (Version 1)
Quarter: 2018Q3

REPORT INFORMATION
  Report Type: Spontaneous
  Country: DK (occurrence: DK)
  Receive Date: 20180809
  Receipt Date: 20180809
  Transmission Date: 20181010
  Serious: Yes (Other)
  Sender: FDA-Public Use
  Company Number: DK-TEVA-2018-DK-937526

PATIENT
  Age: 70 Year
  Sex: Male

DRUGS (2)
  1. SIMVASTATIN. [Suspect]
     Active Substance: SIMVASTATIN
     Indication: ARTERIOSCLEROSIS
     Route: 048
     Dates: end: 2013
  2. SIMVASTATIN. [Suspect]
     Active Substance: SIMVASTATIN
     Dosage: INCREASED
     Route: 050
     Dates: start: 2013

REACTIONS (4)
  - Cardiac operation [Unknown]
  - Arthralgia [Unknown]
  - Insomnia [Unknown]
  - Drug intolerance [Unknown]

NARRATIVE: CASE EVENT DATE: 2013
